FAERS Safety Report 18638347 (Version 3)
Quarter: 2021Q2

REPORT INFORMATION
  Report Type: Report from Study
  Country: US (occurrence: US)
  Receive Date: 20201218
  Receipt Date: 20210407
  Transmission Date: 20210717
  Serious: Yes (Other)
  Sender: FDA-Public Use
  Company Number: US-REGENERON PHARMACEUTICALS, INC.-2020-83258

PATIENT

DRUGS (2)
  1. EYLEA [Suspect]
     Active Substance: AFLIBERCEPT
     Indication: DIABETIC RETINOPATHY
     Dosage: 2 MG/0.05 ML INTO THE LEFT EYE EVERY 4 WEEKS
     Route: 031
  2. EYLEA [Suspect]
     Active Substance: AFLIBERCEPT
     Indication: DIABETIC RETINAL OEDEMA

REACTIONS (3)
  - Eye haemorrhage [Unknown]
  - Product dose omission issue [Unknown]
  - Headache [Unknown]
